FAERS Safety Report 7819308-2 (Version None)
Quarter: 2011Q4

REPORT INFORMATION
  Report Type: 
  Country: None (occurrence: None)
  Receive Date: 20111018
  Receipt Date: 20101021
  Transmission Date: 20120403
  Serious: Yes (Other)
  Sender: FDA-Public Use
  Company Number: US-ASTRAZENECA-2010SE49935

PATIENT
  Sex: Male

DRUGS (2)
  1. ALBUTEROL [Concomitant]
     Indication: DYSPNOEA
     Route: 055
  2. SYMBICORT [Suspect]
     Indication: ASTHMA
     Dosage: TOTAL DAILY DOSE: 160, FREQUENCY: UNKNOWN.
     Route: 055

REACTIONS (1)
  - ATRIAL FIBRILLATION [None]
